FAERS Safety Report 5353269-3 (Version None)
Quarter: 2007Q2

REPORT INFORMATION
  Report Type: 
  Country: None (occurrence: None)
  Receive Date: 20070518
  Receipt Date: 20070315
  Transmission Date: 20071010
  Serious: No
  Sender: FDA-Public Use
  Company Number: TPA2007A00283

PATIENT
  Age: 34 Year
  Sex: Female
  Weight: 95.2554 kg

DRUGS (11)
  1. ROZEREM [Suspect]
     Dosage: 8 MG, QHS, PER ORAL
     Route: 048
     Dates: start: 20061001
  2. NORETHINDRONE (NORETHISTERONE) [Suspect]
     Indication: MENSTRUAL DISORDER
     Dosage: 5 MG, 1 IN 1 D, PER ORAL
     Route: 048
     Dates: start: 20070212, end: 20070213
  3. PREDNISONE [Suspect]
     Indication: PAIN
     Dosage: INTRAMUSCULAR
     Route: 030
  4. MORPHINE [Concomitant]
  5. PHENERGAN [Concomitant]
  6. DIAZEPAM [Concomitant]
  7. REQUIP [Concomitant]
  8. CYMBALTA [Concomitant]
  9. CLONAZEPAM [Concomitant]
  10. PROTONIX [Concomitant]
  11. RANITIDINE [Concomitant]

REACTIONS (6)
  - DRUG INTERACTION [None]
  - DYSMENORRHOEA [None]
  - HOT FLUSH [None]
  - MENSTRUAL DISORDER [None]
  - RASH GENERALISED [None]
  - WEIGHT INCREASED [None]
